FAERS Safety Report 7547234-5 (Version None)
Quarter: 2011Q2

REPORT INFORMATION
  Report Type: 
  Country: None (occurrence: None)
  Receive Date: 20110524
  Receipt Date: 20110228
  Transmission Date: 20111010
  Serious: No
  Sender: FDA-Public Use
  Company Number: 028337

PATIENT
  Sex: Female

DRUGS (1)
  1. CIMZIA [Suspect]
     Dosage: (400 MG 1X/2 WEEKS, FOR 6 WEEKS SUBCUTANEOUS)
     Route: 058

REACTIONS (1)
  - SWELLING FACE [None]
